FAERS Safety Report 13149164 (Version 2)
Quarter: 2017Q1

REPORT INFORMATION
  Report Type: Spontaneous
  Country: JP (occurrence: JP)
  Receive Date: 20170125
  Receipt Date: 20170306
  Transmission Date: 20170428
  Serious: No
  Sender: FDA-Public Use
  Company Number: JP-AMGEN-JPNSP2016162196

PATIENT
  Age: 73 Year
  Sex: Male
  Weight: 51 kg

DRUGS (17)
  1. LASIX [Suspect]
     Active Substance: FUROSEMIDE
     Dosage: 20 MG, QD
     Route: 048
     Dates: start: 201608
  2. NESP [Suspect]
     Active Substance: DARBEPOETIN ALFA
     Dosage: 30 MUG, UNK
     Route: 058
     Dates: start: 20161105, end: 20161105
  3. MIRCERA [Concomitant]
     Active Substance: METHOXY POLYETHYLENE GLYCOL-EPOETIN BETA
     Indication: NEPHROGENIC ANAEMIA
     Dosage: 100 MUG, QD
     Route: 058
     Dates: end: 20160426
  4. LASIX [Suspect]
     Active Substance: FUROSEMIDE
     Indication: OEDEMA
     Dosage: 20 MG, QD
     Route: 048
     Dates: start: 20160423, end: 20160802
  5. ALOSITOL [Concomitant]
     Active Substance: ALLOPURINOL
     Dosage: UNK
     Route: 048
     Dates: start: 20160428
  6. NESP [Suspect]
     Active Substance: DARBEPOETIN ALFA
     Dosage: 30 MUG, UNK
     Route: 058
     Dates: start: 20161105
  7. KALIMATE [Suspect]
     Active Substance: CALCIUM POLYSTYRENE SULFONATE
     Indication: HYPERKALAEMIA
     Dosage: UNK
     Route: 065
  8. MEVALOTIN [Concomitant]
     Active Substance: PRAVASTATIN SODIUM
     Indication: HYPERLIPIDAEMIA
     Dosage: 10 MG, QD
     Route: 048
     Dates: end: 20160428
  9. ADALAT [Suspect]
     Active Substance: NIFEDIPINE
     Indication: HYPERTENSION
     Dosage: 40 MG, BID
     Route: 048
     Dates: end: 20160428
  10. FEBURIC [Concomitant]
     Active Substance: FEBUXOSTAT
     Indication: HYPERURICAEMIA
     Dosage: 10 MG, QD
     Route: 048
     Dates: end: 20160428
  11. ATELEC [Concomitant]
     Active Substance: CILNIDIPINE
     Dosage: UNK
     Route: 048
     Dates: start: 20160428, end: 201608
  12. SODIUM BICARBONATE. [Concomitant]
     Active Substance: SODIUM BICARBONATE
     Indication: METABOLIC ACIDOSIS
     Dosage: 1 G, BID
     Route: 048
     Dates: start: 20160427
  13. NESP [Suspect]
     Active Substance: DARBEPOETIN ALFA
     Indication: NEPHROGENIC ANAEMIA
     Dosage: 120 MUG, UNK
     Route: 058
  14. EPINASTINE [Concomitant]
     Active Substance: EPINASTINE
     Indication: ECZEMA
     Dosage: 20 MG, QD
     Route: 048
     Dates: start: 201609
  15. ALLELOCK [Concomitant]
     Active Substance: OLOPATADINE HYDROCHLORIDE
     Dosage: UNK
     Route: 048
     Dates: start: 201608
  16. NESP [Suspect]
     Active Substance: DARBEPOETIN ALFA
     Dosage: 120 MUG, UNK
     Route: 058
     Dates: start: 201609, end: 201609
  17. NESP [Suspect]
     Active Substance: DARBEPOETIN ALFA
     Dosage: 120 MUG, UNK
     Route: 058
     Dates: start: 20160823, end: 20161007

REACTIONS (4)
  - Contraindicated product administered [Unknown]
  - Eosinophil count increased [Not Recovered/Not Resolved]
  - Pruritus [Not Recovered/Not Resolved]
  - Eczema [Not Recovered/Not Resolved]

NARRATIVE: CASE EVENT DATE: 201603
